FAERS Safety Report 4427324-6 (Version None)
Quarter: 2004Q3

REPORT INFORMATION
  Report Type: 
  Country: None (occurrence: None)
  Receive Date: 20040813
  Receipt Date: 20040813
  Transmission Date: 20050211
  Serious: Yes (Hospitalization)
  Sender: FDA-Public Use
  Company Number: None

PATIENT
  Age: 45 Year
  Sex: Female

DRUGS (5)
  1. BETASERON [Suspect]
     Indication: MULTIPLE SCLEROSIS
  2. BACLOFEN [Concomitant]
  3. PROTONIX [Concomitant]
  4. MIRALAX [Concomitant]
  5. OVCON-35 [Concomitant]

REACTIONS (2)
  - ABDOMINAL PAIN LOWER [None]
  - PAIN [None]
